FAERS Safety Report 5270582-9 (Version None)
Quarter: 2007Q1

REPORT INFORMATION
  Report Type: 
  Country: None (occurrence: None)
  Receive Date: 20070315
  Receipt Date: 20070228
  Transmission Date: 20070707
  Serious: Yes (Hospitalization)
  Sender: FDA-Public Use
  Company Number: 200701IM000055

PATIENT
  Age: 81 Year
  Sex: Male
  Weight: 90.7194 kg

DRUGS (9)
  1. INTERFERON GAMMA-1B [Suspect]
     Indication: IDIOPATHIC PULMONARY FIBROSIS
     Dosage: 200 UG, TIW, SUBCUTANEOUS
     Route: 058
     Dates: start: 20041016
  2. ASPIRIN [Concomitant]
  3. ACETAMINOPHEN [Concomitant]
  4. IBUPROFEN [Concomitant]
  5. ASTELIN [Concomitant]
  6. DOVONEX CREAM 5% [Concomitant]
  7. TUSSIONEX [Concomitant]
  8. NEXIUM [Concomitant]
  9. CYMBALTA [Concomitant]

REACTIONS (2)
  - ATRIAL FIBRILLATION [None]
  - HEART RATE INCREASED [None]
